FAERS Safety Report 16645799 (Version 1)
Quarter: 2019Q3

REPORT INFORMATION
  Report Type: Spontaneous
  Country: US (occurrence: US)
  Receive Date: 20190730
  Receipt Date: 20190730
  Transmission Date: 20191004
  Serious: Yes (Other)
  Sender: FDA-Public Use
  Company Number: US-EMCURE PHARMACEUTICALS LTD-2019-EPL-0463

PATIENT
  Age: 88 Year
  Sex: Female

DRUGS (3)
  1. GEMCITABINE HYDROCHLORIDE. [Suspect]
     Active Substance: GEMCITABINE HYDROCHLORIDE
     Indication: DUCTAL ADENOCARCINOMA OF PANCREAS
     Dosage: 900 MILLIGRAM/SQ. METER ON DAYS 1, 8, AND 15
     Route: 042
  2. RABEPRAZOLE [Concomitant]
     Active Substance: RABEPRAZOLE
  3. CAPECITABINE. [Concomitant]
     Active Substance: CAPECITABINE
     Indication: DUCTAL ADENOCARCINOMA OF PANCREAS
     Dosage: 825 MILLIGRAM/SQ. METER, BID,FOR 14 DAYS OF A 21-DAY CYCLE
     Route: 048

REACTIONS (1)
  - Subacute cutaneous lupus erythematosus [Recovered/Resolved]
